FAERS Safety Report 6275527-0 (Version None)
Quarter: 2009Q3

REPORT INFORMATION
  Report Type: 
  Country: None (occurrence: None)
  Receive Date: 20090721
  Receipt Date: 20090709
  Transmission Date: 20100115
  Serious: Yes (Other)
  Sender: FDA-Public Use
  Company Number: US-PFIZER INC-2009201055

PATIENT
  Sex: Female
  Weight: 113.38 kg

DRUGS (6)
  1. GEODON [Suspect]
     Indication: SCHIZOPHRENIA
     Dosage: 80 MG, 2X/DAY
     Dates: start: 20050520, end: 20060101
  2. HALDOL [Suspect]
     Dosage: 5 MG, 1X/DAY
     Dates: end: 20050722
  3. ABILIFY [Concomitant]
     Dosage: 15 MG, 1X/DAY
     Dates: end: 20050501
  4. AMBIEN [Concomitant]
     Dosage: 5 MG, 1X/DAY
  5. COGENTIN [Concomitant]
     Dosage: 1 MG, 1X/DAY
  6. FLUOXETINE [Concomitant]
     Dosage: 20 MG, 1X/DAY

REACTIONS (2)
  - OCULOGYRIC CRISIS [None]
  - PARANOIA [None]
